FAERS Safety Report 6212314-3 (Version None)
Quarter: 2009Q2

REPORT INFORMATION
  Report Type: 
  Country: None (occurrence: None)
  Receive Date: 20090529
  Receipt Date: 20090516
  Transmission Date: 20091009
  Serious: Yes (Other)
  Sender: FDA-Public Use
  Company Number: 2009S1008763

PATIENT
  Sex: Female

DRUGS (4)
  1. MEBEVERINE (MEBEVERINE) (135 MG) [Suspect]
     Indication: DRUG USE FOR UNKNOWN INDICATION
     Dosage: 1350 MG; ONCE; ORAL
     Route: 048
     Dates: start: 20090516, end: 20090516
  2. CLINDINIUM BROMIDE (CLIDINUM BROMIDE) [Suspect]
     Indication: DRUG USE FOR UNKNOWN INDICATION
     Dosage: ONCE; ORAL
     Route: 048
     Dates: start: 20090516, end: 20090516
  3. AMOXICILLIN [Suspect]
     Indication: DRUG USE FOR UNKNOWN INDICATION
     Dosage: 2500 MG; ONCE;
     Dates: start: 20090516, end: 20090516
  4. TETRACYCLINE [Suspect]
     Indication: DRUG USE FOR UNKNOWN INDICATION
     Dosage: 2500 MG; ONCE; ORAL
     Route: 048
     Dates: start: 20090516, end: 20090516

REACTIONS (4)
  - INTENTIONAL OVERDOSE [None]
  - NAUSEA [None]
  - SUICIDE ATTEMPT [None]
  - VOMITING [None]
